FAERS Safety Report 9471408 (Version 1)
Quarter: 2013Q3

REPORT INFORMATION
  Report Type: Spontaneous
  Country: US (occurrence: US)
  Receive Date: 20130822
  Receipt Date: 20130822
  Transmission Date: 20140515
  Serious: Yes (Hospitalization, Other)
  Sender: FDA-Public Use
  Company Number: US-B.I. PHARMACEUTICALS,INC./RIDGEFIELD-2013-BI-25097BP

PATIENT
  Age: 56 Year
  Sex: Female
  Weight: 61 kg

DRUGS (3)
  1. SPIRIVA [Suspect]
     Indication: CHRONIC OBSTRUCTIVE PULMONARY DISEASE
     Dosage: 18 MCG
     Route: 055
     Dates: start: 2004
  2. PULMICORT FLEXHALER [Concomitant]
     Indication: CHRONIC OBSTRUCTIVE PULMONARY DISEASE
     Route: 055
     Dates: start: 2004
  3. ATIVAN [Concomitant]
     Indication: ANXIETY
     Dosage: 6 MG
     Route: 048
     Dates: start: 2003

REACTIONS (5)
  - Asthenia [Recovered/Resolved]
  - Muscle spasms [Not Recovered/Not Resolved]
  - Drug withdrawal convulsions [Recovered/Resolved]
  - Hepatitis C [Recovered/Resolved]
  - Hypothyroidism [Not Recovered/Not Resolved]
